FAERS Safety Report 12215249 (Version 1)
Quarter: 2016Q1

REPORT INFORMATION
  Report Type: Spontaneous
  Country: GB (occurrence: GB)
  Receive Date: 20160328
  Receipt Date: 20160328
  Transmission Date: 20160526
  Serious: Yes (Congenital Anomaly, Other)
  Sender: FDA-Public Use
  Company Number: GB-BAYER-2016-056095

PATIENT

DRUGS (3)
  1. ACETYLSALICYLIC ACID (} 100 MG) [Suspect]
     Active Substance: ASPIRIN
     Dosage: UNK
     Route: 064
  2. MAGNESIUM SULPHATE [Concomitant]
     Active Substance: MAGNESIUM SULFATE
     Indication: THERAPEUTIC PROCEDURE
     Route: 064
  3. DALTEPARIN [Concomitant]
     Active Substance: DALTEPARIN
     Route: 064

REACTIONS (4)
  - Low birth weight baby [None]
  - Premature baby [None]
  - Talipes [None]
  - Foetal exposure during pregnancy [None]
